FAERS Safety Report 13095137 (Version 1)
Quarter: 2017Q1

REPORT INFORMATION
  Report Type: Other
  Country: ES (occurrence: ES)
  Receive Date: 20170107
  Receipt Date: 20170107
  Transmission Date: 20170428
  Serious: Yes (Hospitalization)
  Sender: FDA-Public Use
  Company Number: ES-GRANULES INDIA LIMITED-1061700

PATIENT
  Age: 22 Year
  Sex: Male

DRUGS (2)
  1. IBUPROFEN. [Suspect]
     Active Substance: IBUPROFEN
     Indication: PRODUCT USED FOR UNKNOWN INDICATION
  2. ACETAMINOPHEN. [Suspect]
     Active Substance: ACETAMINOPHEN

REACTIONS (9)
  - Liver transplant [Unknown]
  - Pleural effusion [Unknown]
  - Pyrexia [Unknown]
  - Acute hepatic failure [Unknown]
  - Eosinophilia [Unknown]
  - Hepatic encephalopathy [Unknown]
  - Metabolic acidosis [Unknown]
  - Respiratory failure [Unknown]
  - Hypersensitivity [Unknown]
